FAERS Safety Report 14246404 (Version 2)
Quarter: 2017Q4

REPORT INFORMATION
  Report Type: Spontaneous
  Country: US (occurrence: US)
  Receive Date: 20171204
  Receipt Date: 20171211
  Transmission Date: 20180321
  Serious: Yes (Other)
  Sender: FDA-Public Use
  Company Number: US-MALLINCKRODT-T201704677

PATIENT
  Sex: Female

DRUGS (1)
  1. ACETAMINOPHEN AND CODEINE [Suspect]
     Active Substance: ACETAMINOPHEN\CODEINE PHOSPHATE
     Indication: PAIN
     Dosage: 300/30MG
     Route: 048
     Dates: start: 20171121, end: 20171121

REACTIONS (9)
  - Loss of consciousness [Unknown]
  - Hyperhidrosis [Unknown]
  - Vomiting [Unknown]
  - Product quality issue [Unknown]
  - Malaise [Unknown]
  - Product size issue [Unknown]
  - Product substitution issue [Unknown]
  - Dysphagia [Unknown]
  - Drug ineffective [Unknown]
